FAERS Safety Report 18970807 (Version 2)
Quarter: 2021Q2

REPORT INFORMATION
  Report Type: Spontaneous
  Country: FR (occurrence: FR)
  Receive Date: 20210304
  Receipt Date: 20210517
  Transmission Date: 20210717
  Serious: Yes (Other)
  Sender: FDA-Public Use
  Company Number: FR-US-PROVELL PHARMACEUTICALS LLC-E2B_90077884

PATIENT
  Age: 78 Year
  Sex: Female

DRUGS (2)
  1. LEVOTHYROX [Suspect]
     Active Substance: LEVOTHYROXINE
     Dosage: NEW FORMULATION?1 TABLET OF 50 MCG + ? TABLET OF 25 MCG
     Dates: start: 2017
  2. LEVOTHYROX [Suspect]
     Active Substance: LEVOTHYROXINE
     Indication: POST PROCEDURAL HYPOTHYROIDISM
     Dosage: OLD FORMULATION

REACTIONS (20)
  - Somnolence [Unknown]
  - Anxiety [Unknown]
  - Panic attack [Unknown]
  - Suicidal ideation [Unknown]
  - Cough [Unknown]
  - Asthenia [Unknown]
  - Wrong technique in product usage process [Unknown]
  - Malaise [Unknown]
  - White blood cell count increased [Unknown]
  - Depression [Unknown]
  - Gastroenteritis [Unknown]
  - Bronchial disorder [Unknown]
  - Sleep disorder [Unknown]
  - Labile blood pressure [Unknown]
  - Fatigue [Unknown]
  - Vertigo [Unknown]
  - Abdominal pain upper [Unknown]
  - Headache [Unknown]
  - COVID-19 [Unknown]
  - Nasopharyngitis [Unknown]

NARRATIVE: CASE EVENT DATE: 2020
